FAERS Safety Report 22519157 (Version 1)
Quarter: 2023Q2

REPORT INFORMATION
  Report Type: Spontaneous
  Country: RU (occurrence: RU)
  Receive Date: 20230605
  Receipt Date: 20230605
  Transmission Date: 20230721
  Serious: Yes (Other)
  Sender: FDA-Public Use
  Company Number: RU-ROCHE-3358619

PATIENT
  Sex: Female

DRUGS (2)
  1. CAPECITABINE [Suspect]
     Active Substance: CAPECITABINE
     Indication: Product used for unknown indication
     Route: 048
  2. ERBITUX [Concomitant]
     Active Substance: CETUXIMAB

REACTIONS (3)
  - Sensitive skin [Unknown]
  - Mobility decreased [Unknown]
  - Nail infection [Unknown]
